FAERS Safety Report 9202009 (Version 2)
Quarter: 2013Q2

REPORT INFORMATION
  Report Type: Spontaneous
  Country: FR (occurrence: FR)
  Receive Date: 20130401
  Receipt Date: 20130408
  Transmission Date: 20140414
  Serious: Yes (Other)
  Sender: FDA-Public Use
  Company Number: FR-ROCHE-1208833

PATIENT
  Age: 58 Year
  Sex: Male

DRUGS (3)
  1. XOLAIR [Suspect]
     Indication: PRODUCT USED FOR UNKNOWN INDICATION
     Route: 065
  2. XOLAIR [Suspect]
     Route: 065
  3. XOLAIR [Suspect]
     Route: 065

REACTIONS (5)
  - Angioedema [Recovered/Resolved]
  - Urticaria [Recovering/Resolving]
  - Oedema [Unknown]
  - Lip swelling [Recovered/Resolved]
  - Pruritus [Recovering/Resolving]
